FAERS Safety Report 4817957-7 (Version None)
Quarter: 2005Q3

REPORT INFORMATION
  Report Type: 
  Country: None (occurrence: None)
  Receive Date: 20050929
  Receipt Date: 20050708
  Transmission Date: 20060218
  Serious: No
  Sender: FDA-Public Use
  Company Number: 05P-163-0305206-00

PATIENT
  Age: 72 Year
  Sex: Male
  Weight: 83.9154 kg

DRUGS (5)
  1. HUMIRA [Suspect]
     Indication: RHEUMATOID ARTHRITIS
     Dosage: 40 MG, 1 IN 2 WK, SUBCUTANEOUS
     Route: 058
     Dates: start: 20050501
  2. RABEPRAZOLE SODIUM [Concomitant]
  3. TERAZOSIN [Concomitant]
  4. LEFLUNOMIDE [Concomitant]
  5. CLONIPINE [Concomitant]

REACTIONS (1)
  - PRURITUS GENERALISED [None]
